FAERS Safety Report 23141942 (Version 1)
Quarter: 2023Q4

REPORT INFORMATION
  Report Type: Spontaneous
  Country: US (occurrence: US)
  Receive Date: 20231103
  Receipt Date: 20231103
  Transmission Date: 20240110
  Serious: No
  Sender: FDA-Public Use
  Company Number: US-MYOVANT SCIENCES GMBH-2023MYSCI1000109

PATIENT
  Sex: Male

DRUGS (3)
  1. ORGOVYX [Suspect]
     Active Substance: RELUGOLIX
     Indication: Prostate cancer
     Dosage: 120 MILLIGRAM, QD
     Route: 048
     Dates: start: 2022
  2. ORGOVYX [Suspect]
     Active Substance: RELUGOLIX
     Indication: Blood testosterone increased
  3. ORGOVYX [Suspect]
     Active Substance: RELUGOLIX
     Indication: Prostatic specific antigen increased

REACTIONS (2)
  - Product storage error [Unknown]
  - Product distribution issue [Unknown]
